FAERS Safety Report 9207028 (Version 4)
Quarter: 2013Q4

REPORT INFORMATION
  Report Type: Spontaneous
  Country: US (occurrence: US)
  Receive Date: 20130403
  Receipt Date: 20131105
  Transmission Date: 20140711
  Serious: Yes (Hospitalization)
  Sender: FDA-Public Use
  Company Number: US-UCBSA-081701

PATIENT
  Age: 73 Year
  Sex: Female
  Weight: 67.1 kg

DRUGS (3)
  1. VIMPAT [Suspect]
     Indication: CONVULSION
     Dates: end: 201302
  2. VIMPAT [Suspect]
     Indication: CONVULSION
     Dosage: 150 MG
     Dates: start: 201302
  3. SYNTHROID [Concomitant]

REACTIONS (3)
  - Convulsion [Recovered/Resolved]
  - Stress [Not Recovered/Not Resolved]
  - Drug dose omission [Unknown]
